FAERS Safety Report 13086077 (Version 1)
Quarter: 2017Q1

REPORT INFORMATION
  Report Type: Spontaneous
  Country: US (occurrence: US)
  Receive Date: 20170104
  Receipt Date: 20170104
  Transmission Date: 20170428
  Serious: Yes (Other)
  Sender: FDA-Public Use
  Company Number: US-RELYPSA-RLY2016004278

PATIENT
  Sex: Male

DRUGS (2)
  1. VELTASSA [Suspect]
     Active Substance: PATIROMER
     Dosage: 8.4 G, TIW
     Route: 065
     Dates: start: 2016
  2. VELTASSA [Suspect]
     Active Substance: PATIROMER
     Indication: PRODUCT USED FOR UNKNOWN INDICATION
     Dosage: 8.4 G, QD
     Route: 065
     Dates: start: 20161026, end: 2016

REACTIONS (5)
  - Cardiac operation [Unknown]
  - Dizziness [Unknown]
  - Inappropriate schedule of drug administration [Unknown]
  - Venous occlusion [Unknown]
  - Coagulopathy [Unknown]

NARRATIVE: CASE EVENT DATE: 2016
